FAERS Safety Report 4344880-7 (Version None)
Quarter: 2004Q2

REPORT INFORMATION
  Report Type: 
  Country: None (occurrence: None)
  Receive Date: 20040423
  Receipt Date: 20030805
  Transmission Date: 20050107
  Serious: No
  Sender: FDA-Public Use
  Company Number: US-GLAXOSMITHKLINE-A0491767A

PATIENT
  Age: 70 Year
  Sex: Male
  Weight: 70.9 kg

DRUGS (5)
  1. ZOFRAN [Suspect]
     Indication: NAUSEA
     Dosage: 12MG UNKNOWN
     Route: 042
     Dates: start: 20030805, end: 20030805
  2. DECADRON [Concomitant]
     Dosage: 20MG UNKNOWN
     Route: 048
  3. CIMETIDINE HCL [Concomitant]
     Route: 042
  4. TAXOL [Concomitant]
     Route: 042
  5. CARBOPLATIN [Concomitant]
     Route: 042

REACTIONS (5)
  - BACK PAIN [None]
  - BLOOD PRESSURE DECREASED [None]
  - DIZZINESS [None]
  - FLUSHING [None]
  - TACHYCARDIA [None]
